FAERS Safety Report 10268364 (Version 1)
Quarter: 2014Q2

REPORT INFORMATION
  Report Type: Spontaneous
  Country: US (occurrence: None)
  Receive Date: 20140625
  Receipt Date: 20140625
  Transmission Date: 20141212
  Serious: Yes (Death)
  Sender: FDA-Public Use
  Company Number: 2399606

PATIENT
  Age: 11 Year
  Sex: Female

DRUGS (8)
  1. CARBOPLATIN [Suspect]
     Indication: ASTROCYTOMA, LOW GRADE
     Dosage: 295 MG MILLIGRAM(S), CYCLICAL, UNKNOWN
  2. VINCRISTINE [Concomitant]
  3. LEVOTHYROXINE [Concomitant]
  4. ONDANSETRON [Concomitant]
  5. OMEPRAZOLE [Concomitant]
  6. TRIMETHOPRIM SULFAMETHOXAZOLE [Concomitant]
  7. HYDROMORPHONE [Concomitant]
  8. IBUPROFEN [Concomitant]

REACTIONS (19)
  - Abdominal pain [None]
  - Diarrhoea [None]
  - Chills [None]
  - Hypertension [None]
  - Tachycardia [None]
  - Tachypnoea [None]
  - Hypoxia [None]
  - Dialysis [None]
  - Headache [None]
  - Lethargy [None]
  - Brain oedema [None]
  - Brain oedema [None]
  - General physical health deterioration [None]
  - Multi-organ failure [None]
  - Renal failure acute [None]
  - Hepatitis [None]
  - Coagulopathy [None]
  - Haemolytic anaemia [None]
  - Drug specific antibody present [None]
